FAERS Safety Report 4480771-9 (Version None)
Quarter: 2005Q1

REPORT INFORMATION
  Report Type: 
  Country: None (occurrence: None)
  Receive Date: 20041019
  Receipt Date: 20040929
  Transmission Date: 20050727
  Serious: Yes (Hospitalization)
  Sender: FDA-Public Use
  Company Number: 2004USFACT00054

PATIENT
  Age: 88 Year
  Sex: Female

DRUGS (1)
  1. FACTIVE [Suspect]
     Indication: BACTERIAL INFECTION
     Dosage: QD, ORAL
     Route: 048
     Dates: start: 20040927

REACTIONS (1)
  - VAGINAL HAEMORRHAGE [None]
